FAERS Safety Report 14181898 (Version 1)
Quarter: 2017Q4

REPORT INFORMATION
  Report Type: Spontaneous
  Country: US (occurrence: US)
  Receive Date: 20171113
  Receipt Date: 20171113
  Transmission Date: 20180321
  Serious: Yes (Other)
  Sender: FDA-Public Use
  Company Number: US-CIPLA LTD.-2017US19689

PATIENT

DRUGS (13)
  1. TEMOZOLOMIDE. [Suspect]
     Active Substance: TEMOZOLOMIDE
     Indication: METASTASES TO LUNG
  2. CARBOPLATIN. [Suspect]
     Active Substance: CARBOPLATIN
     Indication: MALIGNANT MELANOMA
  3. SORAFENIB [Suspect]
     Active Substance: SORAFENIB
     Indication: RECURRENT CANCER
     Dosage: UNK, 6 CYCLES
     Route: 065
  4. PACLITAXEL. [Suspect]
     Active Substance: PACLITAXEL
     Indication: MALIGNANT MELANOMA
  5. SORAFENIB [Suspect]
     Active Substance: SORAFENIB
     Indication: METASTASES TO LUNG
  6. PACLITAXEL. [Suspect]
     Active Substance: PACLITAXEL
     Indication: METASTASES TO LUNG
  7. SORAFENIB [Suspect]
     Active Substance: SORAFENIB
     Indication: MALIGNANT MELANOMA
  8. ENOXAPARIN [Concomitant]
     Active Substance: ENOXAPARIN
     Indication: ANTICOAGULANT THERAPY
     Dosage: UNK
     Route: 065
  9. TEMOZOLOMIDE. [Suspect]
     Active Substance: TEMOZOLOMIDE
     Indication: RECURRENT CANCER
     Dosage: UNK, 6 CYCLES
     Route: 065
  10. CARBOPLATIN. [Suspect]
     Active Substance: CARBOPLATIN
     Indication: METASTASES TO LUNG
  11. PACLITAXEL. [Suspect]
     Active Substance: PACLITAXEL
     Indication: RECURRENT CANCER
     Dosage: UNK, 11 CYCLES
     Route: 065
  12. TEMOZOLOMIDE. [Suspect]
     Active Substance: TEMOZOLOMIDE
     Indication: MALIGNANT MELANOMA
  13. CARBOPLATIN. [Suspect]
     Active Substance: CARBOPLATIN
     Indication: RECURRENT CANCER
     Dosage: UNK, 11 CYCLES
     Route: 065

REACTIONS (5)
  - Disease progression [Unknown]
  - Neuropathy peripheral [Unknown]
  - Melanoma recurrent [Unknown]
  - Pulmonary embolism [Unknown]
  - Metastases to lung [Unknown]
